FAERS Safety Report 6599158-8 (Version None)
Quarter: 2010Q1

REPORT INFORMATION
  Report Type: 
  Country: None (occurrence: None)
  Receive Date: 20100217
  Receipt Date: 20100127
  Transmission Date: 20100710
  Serious: Yes (Other)
  Sender: FDA-Public Use
  Company Number: 2010AC000066

PATIENT
  Age: 56 Year
  Sex: Female

DRUGS (13)
  1. DIGOXIN [Suspect]
     Dosage: PO
     Route: 048
     Dates: end: 20080523
  2. DIGOXIN [Suspect]
     Dosage: 0.25 MG;
     Dates: start: 20080121, end: 20080418
  3. LISINOPRIL [Concomitant]
  4. METOPROLOL [Concomitant]
  5. FUROSEMIDE [Concomitant]
  6. K-DUR [Concomitant]
  7. AMOXICILLIN [Concomitant]
  8. DARVOCET [Concomitant]
  9. AZITHROMYC [Concomitant]
  10. CELEBREX [Concomitant]
  11. PREMARIN [Concomitant]
  12. AUGMENTIN [Concomitant]
  13. IBUPROFEN [Concomitant]

REACTIONS (10)
  - ANXIETY [None]
  - CARDIOMYOPATHY [None]
  - DIZZINESS POSTURAL [None]
  - ECONOMIC PROBLEM [None]
  - MULTIPLE INJURIES [None]
  - MUSCLE STRAIN [None]
  - OSTEOARTHRITIS [None]
  - PAIN [None]
  - REFUSAL OF TREATMENT BY PATIENT [None]
  - TENDONITIS [None]
